FAERS Safety Report 9252972 (Version 1)
Quarter: 2013Q2

REPORT INFORMATION
  Report Type: Report from Study
  Country: US (occurrence: US)
  Receive Date: 20130424
  Receipt Date: 20130424
  Transmission Date: 20140414
  Serious: Yes (Life-Threatening, Hospitalization, Other)
  Sender: FDA-Public Use
  Company Number: US-US-EMD SERONO, INC.-7206094

PATIENT
  Age: 7 Year
  Sex: Male
  Weight: 25 kg

DRUGS (2)
  1. SAIZEN [(SOMATROPIN (RDNA ORIGIN) FOR INJECTION)] [Suspect]
     Indication: GROWTH HORMONE DEFICIENCY
     Dates: start: 20090630
  2. LEVOTHYROXINE [Concomitant]
     Indication: HYPOTHYROIDISM

REACTIONS (10)
  - Respiratory failure [Unknown]
  - Shock [Unknown]
  - Clostridium difficile colitis [Unknown]
  - Dehydration [Unknown]
  - Post gastric surgery syndrome [Recovering/Resolving]
  - Pharyngeal disorder [Unknown]
  - Convulsion [Unknown]
  - Aspiration [Unknown]
  - Eyelid ptosis [Unknown]
  - Ocular hyperaemia [Unknown]
